FAERS Safety Report 11325113 (Version 2)
Quarter: 2015Q3

REPORT INFORMATION
  Report Type: Spontaneous
  Country: US (occurrence: US)
  Receive Date: 20150730
  Receipt Date: 20150807
  Transmission Date: 20151125
  Serious: No
  Sender: FDA-Public Use
  Company Number: US-ELI_LILLY_AND_COMPANY-US201507009231

PATIENT
  Age: 79 Year
  Sex: Female

DRUGS (3)
  1. HUMALOG [Suspect]
     Active Substance: INSULIN LISPRO
     Indication: TYPE 2 DIABETES MELLITUS
     Dosage: 5 DF, EACH MORNING
     Route: 065
     Dates: start: 201501
  2. HUMALOG [Suspect]
     Active Substance: INSULIN LISPRO
     Dosage: 10 DF, QD
     Route: 065
     Dates: start: 201501
  3. HUMALOG [Suspect]
     Active Substance: INSULIN LISPRO
     Dosage: 5 DF, EACH EVENING
     Route: 065
     Dates: start: 201501

REACTIONS (4)
  - Drug dose omission [Unknown]
  - Malaise [Unknown]
  - Product packaging quantity issue [None]
  - Blood glucose increased [Unknown]

NARRATIVE: CASE EVENT DATE: 20150724
